FAERS Safety Report 18716705 (Version 4)
Quarter: 2022Q1

REPORT INFORMATION
  Report Type: Spontaneous
  Country: US (occurrence: US)
  Receive Date: 20210108
  Receipt Date: 20220330
  Transmission Date: 20220424
  Serious: No
  Sender: FDA-Public Use
  Company Number: US-PFIZER INC-2021001578

PATIENT
  Age: 11 Year
  Sex: Male

DRUGS (3)
  1. GENOTROPIN [Suspect]
     Active Substance: SOMATROPIN
     Dosage: 0.1 MG, UNK
     Dates: start: 202009
  2. GENOTROPIN [Suspect]
     Active Substance: SOMATROPIN
     Dosage: 1MG ADMINISTERED TO IN THE STOMACH, LEGS, BUTT ONCE
     Dates: start: 202010
  3. GENOTROPIN [Suspect]
     Active Substance: SOMATROPIN
     Dosage: UNK

REACTIONS (3)
  - Device use issue [Unknown]
  - Device issue [Unknown]
  - Drug dose omission by device [Unknown]

NARRATIVE: CASE EVENT DATE: 20200101
